FAERS Safety Report 21101202 (Version 4)
Quarter: 2022Q4

REPORT INFORMATION
  Report Type: Spontaneous
  Country: IN (occurrence: IN)
  Receive Date: 20220719
  Receipt Date: 20221019
  Transmission Date: 20230113
  Serious: Yes (Other)
  Sender: FDA-Public Use
  Company Number: ALC2022IN003273

PATIENT
  Age: 65 Year
  Sex: Female

DRUGS (6)
  1. BSS [Suspect]
     Active Substance: CALCIUM CHLORIDE\MAGNESIUM CHLORIDE\POTASSIUM CHLORIDE\SODIUM ACETATE\SODIUM CHLORIDE\SODIUM CITRATE
     Indication: Surgery
     Route: 047
  2. TROPICAMIDE [Suspect]
     Active Substance: TROPICAMIDE
     Indication: Postoperative care
     Dosage: UNK UNK, QD
     Route: 047
  3. POVIDONE-IODINE [Suspect]
     Active Substance: POVIDONE-IODINE
     Indication: Preoperative care
     Dosage: THREE TIMES EVERY 5 MINUTES
     Route: 065
  4. POVIDONE-IODINE [Suspect]
     Active Substance: POVIDONE-IODINE
     Indication: Preoperative care
     Route: 061
  5. DIFLUPREDNATE [Suspect]
     Active Substance: DIFLUPREDNATE
     Indication: Postoperative care
     Dosage: UNK UNK, QID
     Route: 065
  6. MOXIFLOXACIN [Suspect]
     Active Substance: MOXIFLOXACIN
     Indication: Postoperative care
     Dosage: UNK UNK, QID
     Route: 065

REACTIONS (4)
  - Endophthalmitis [Not Recovered/Not Resolved]
  - Blindness unilateral [Not Recovered/Not Resolved]
  - Corneal infection [Unknown]
  - Multiple use of single-use product [Unknown]

NARRATIVE: CASE EVENT DATE: 20220704
